FAERS Safety Report 9108490 (Version 1)
Quarter: 2013Q1

REPORT INFORMATION
  Report Type: Spontaneous
  Country: CO (occurrence: CO)
  Receive Date: 20130222
  Receipt Date: 20130222
  Transmission Date: 20140127
  Serious: Yes (Other)
  Sender: FDA-Public Use
  Company Number: CO-ABBOTT-13P-036-1053797-00

PATIENT
  Age: 56 None
  Sex: Female
  Weight: 59 kg

DRUGS (6)
  1. HUMIRA [Suspect]
     Indication: RHEUMATOID ARTHRITIS
     Route: 058
     Dates: start: 20080601, end: 20130124
  2. METHOTREXATE [Concomitant]
     Indication: PRODUCT USED FOR UNKNOWN INDICATION
  3. DELFAZACORT [Concomitant]
     Indication: PRODUCT USED FOR UNKNOWN INDICATION
  4. DICLOFENAC [Concomitant]
     Indication: PRODUCT USED FOR UNKNOWN INDICATION
  5. FOLIC ACID [Concomitant]
     Indication: PRODUCT USED FOR UNKNOWN INDICATION
  6. ENALAPRIL [Concomitant]
     Indication: HYPERTENSION
     Dosage: EVERYDAY
     Route: 048

REACTIONS (3)
  - Dental caries [Not Recovered/Not Resolved]
  - Tooth fracture [Not Recovered/Not Resolved]
  - Dental pulp disorder [Not Recovered/Not Resolved]
